FAERS Safety Report 24431824 (Version 1)
Quarter: 2024Q4

REPORT INFORMATION
  Report Type: Spontaneous
  Country: US (occurrence: US)
  Receive Date: 20241014
  Receipt Date: 20241014
  Transmission Date: 20250114
  Serious: Yes (Other)
  Sender: AUROBINDO
  Company Number: US-AUROBINDO-AUR-APL-2024-048714

PATIENT
  Age: 4 Year
  Sex: Female

DRUGS (7)
  1. METHYLPREDNISOLONE [Suspect]
     Active Substance: METHYLPREDNISOLONE
     Indication: Mitochondrial encephalomyopathy
     Dosage: 30 MILLIGRAM/KILOGRAM, DAILY (OVER FIVE DAYS BEGINNING AT HOUR 20 OF SYMPTOMS)
     Route: 042
  2. SODIUM CHLORIDE [Suspect]
     Active Substance: SODIUM CHLORIDE
     Indication: Blood sodium increased
     Dosage: UNK
     Route: 065
  3. IMMUNE GLOBULIN NOS [Suspect]
     Active Substance: IMMUNE GLOBULIN NOS
     Indication: Mitochondrial encephalomyopathy
     Dosage: 2 GRAM PER KILOGRAM
     Route: 042
  4. LORAZEPAM [Concomitant]
     Active Substance: LORAZEPAM
     Indication: Mitochondrial encephalomyopathy
     Dosage: UNK
     Route: 065
  5. LEVETIRACETAM [Concomitant]
     Active Substance: LEVETIRACETAM
     Indication: Mitochondrial encephalomyopathy
     Dosage: UNK
     Route: 065
  6. FOSPHENYTOIN [Concomitant]
     Active Substance: FOSPHENYTOIN
     Indication: Mitochondrial encephalomyopathy
     Dosage: UNK
     Route: 065
  7. NOREPINEPHRINE [Concomitant]
     Active Substance: NOREPINEPHRINE\NOREPINEPHRINE BITARTRATE
     Indication: Product used for unknown indication
     Dosage: UNK (NFUSION TO MAXIMUM DOSING OF 0.04 MCG/KG/MIN)
     Route: 065

REACTIONS (1)
  - Drug ineffective [Unknown]
